FAERS Safety Report 10173283 (Version 1)
Quarter: 2014Q2

REPORT INFORMATION
  Report Type: Spontaneous
  Country: CN (occurrence: CN)
  Receive Date: 20140515
  Receipt Date: 20140515
  Transmission Date: 20141212
  Serious: Yes (Other)
  Sender: FDA-Public Use
  Company Number: CN-BAXTER-2014BAX023162

PATIENT
  Age: 42 Year
  Sex: Female
  Weight: 67 kg

DRUGS (1)
  1. 5% MANNITOL INJECTION [Suspect]
     Indication: INTERVERTEBRAL DISC PROTRUSION
     Route: 042
     Dates: start: 20130220, end: 20130224

REACTIONS (2)
  - Chest discomfort [Recovered/Resolved]
  - Dyspnoea [Recovered/Resolved]
